FAERS Safety Report 9146940 (Version 1)
Quarter: 2013Q1

REPORT INFORMATION
  Report Type: Spontaneous
  Country: US (occurrence: None)
  Receive Date: 20130228
  Receipt Date: 20130228
  Transmission Date: 20140127
  Serious: No
  Sender: FDA-Public Use
  Company Number: None

PATIENT
  Age: 89 Year
  Sex: Female
  Weight: 53.07 kg

DRUGS (1)
  1. PHENAZOPYRIDINE HCL [Suspect]
     Dosage: ONE TAB 3 TIMES A DAY MOUTH
     Route: 048
     Dates: start: 20130208

REACTIONS (2)
  - Muscle spasms [None]
  - Muscle spasms [None]
